FAERS Safety Report 9203998 (Version 1)
Quarter: 2013Q2

REPORT INFORMATION
  Report Type: Spontaneous
  Country: IT (occurrence: IT)
  Receive Date: 20130402
  Receipt Date: 20130402
  Transmission Date: 20140414
  Serious: Yes (Hospitalization)
  Sender: FDA-Public Use
  Company Number: IT-ELI_LILLY_AND_COMPANY-IT201303008644

PATIENT
  Age: 69 Year
  Sex: Female

DRUGS (5)
  1. ZYPREXA [Suspect]
     Indication: PSYCHOTIC DISORDER
     Dosage: 10 DF, QD
     Route: 048
     Dates: start: 20100228, end: 20130228
  2. METFORMIN [Concomitant]
  3. ENALAPRIL [Concomitant]
  4. LORAZEPAM [Concomitant]
  5. GLIMEPIRIDE [Concomitant]

REACTIONS (4)
  - Confusional state [Recovering/Resolving]
  - Extrapyramidal disorder [Recovering/Resolving]
  - Tremor [Recovering/Resolving]
  - Asthenia [Recovering/Resolving]
